FAERS Safety Report 7523517-X (Version None)
Quarter: 2011Q2

REPORT INFORMATION
  Report Type: 
  Country: None (occurrence: None)
  Receive Date: 20110603
  Receipt Date: 20110528
  Transmission Date: 20111010
  Serious: Yes (Other)
  Sender: FDA-Public Use
  Company Number: CHPA2011NO07175

PATIENT
  Sex: Female

DRUGS (1)
  1. OTRIVIN [Suspect]
     Dosage: 1 BOTTLE, EVERY 3 DAYS
     Route: 045

REACTIONS (3)
  - DRUG DEPENDENCE [None]
  - NASAL OBSTRUCTION [None]
  - OVERDOSE [None]
